FAERS Safety Report 23680500 (Version 1)
Quarter: 2024Q1

REPORT INFORMATION
  Report Type: Report from Study
  Country: US (occurrence: US)
  Receive Date: 20240328
  Receipt Date: 20240328
  Transmission Date: 20240410
  Serious: Yes (Other)
  Sender: FDA-Public Use
  Company Number: US-TAKEDA-US201921935

PATIENT
  Sex: Female

DRUGS (1)
  1. HUMAN IMMUNOGLOBULIN G [Suspect]
     Active Substance: HUMAN IMMUNOGLOBULIN G
     Indication: Primary immunodeficiency syndrome
     Dosage: UNK
     Route: 058

REACTIONS (7)
  - Knee operation [Unknown]
  - Infusion site scar [Unknown]
  - Thyroid disorder [Unknown]
  - Weight decreased [Unknown]
  - Blood pressure fluctuation [Recovering/Resolving]
  - Blood pressure increased [Unknown]
  - Fatigue [Unknown]
